FAERS Safety Report 5333570-X (Version None)
Quarter: 2007Q2

REPORT INFORMATION
  Report Type: 
  Country: None (occurrence: None)
  Receive Date: 20070521
  Receipt Date: 20070508
  Transmission Date: 20071010
  Serious: Yes (Death)
  Sender: FDA-Public Use
  Company Number: MC200700382

PATIENT

DRUGS (3)
  1. ANGIOMAX [Suspect]
     Dosage: SEE IMAGE
     Route: 042
     Dates: start: 20070401, end: 20070401
  2. HEPARIN [Suspect]
     Dates: start: 20070401, end: 20070401
  3. INTEGRILIN [Suspect]
     Dates: start: 20070401, end: 20070401

REACTIONS (2)
  - COAGULATION TIME ABNORMAL [None]
  - DRUG INEFFECTIVE [None]
